FAERS Safety Report 11639371 (Version 1)
Quarter: 2015Q4

REPORT INFORMATION
  Report Type: Spontaneous
  Country: US (occurrence: US)
  Receive Date: 20151019
  Receipt Date: 20151019
  Transmission Date: 20160304
  Serious: No
  Sender: FDA-Public Use
  Company Number: US-LUPIN PHARMACEUTICALS INC.-E2B_00004138

PATIENT
  Age: 65 Year
  Sex: Female
  Weight: 68 kg

DRUGS (1)
  1. LISINOPRIL TABLETS USP 10MG [Suspect]
     Active Substance: LISINOPRIL
     Indication: HYPERTENSION
     Route: 048
     Dates: start: 20150811, end: 20150812

REACTIONS (10)
  - Feeling abnormal [Unknown]
  - Cough [Unknown]
  - Fear [Unknown]
  - Depressed mood [Unknown]
  - Dyspnoea [Unknown]
  - Insomnia [Unknown]
  - Hallucination [Unknown]
  - Oropharyngeal pain [Unknown]
  - Asthenia [Unknown]
  - Nervousness [Unknown]

NARRATIVE: CASE EVENT DATE: 201508
